FAERS Safety Report 20058953 (Version 1)
Quarter: 2021Q4

REPORT INFORMATION
  Report Type: Spontaneous
  Country: US (occurrence: US)
  Receive Date: 20211111
  Receipt Date: 20211111
  Transmission Date: 20220303
  Serious: Yes (Other)
  Sender: FDA-Public Use
  Company Number: US-UPSHER-SMITH LABORATORIES, LLC-2021USL00632

PATIENT
  Age: 22 Year
  Sex: Female

DRUGS (2)
  1. TOSYMRA [Suspect]
     Active Substance: SUMATRIPTAN
     Indication: Migraine with aura
     Dosage: 10 MG (1 SPRAY), ONCE  INTO 1 NOSTRIL AT ONSET OF HEADACHE; MAY REPEAT DOSE AFTER 1 HOUR IF NEEDED;
     Route: 045
     Dates: start: 20210818, end: 20210818
  2. CANNABIS SATIVA SUBSP. INDICA TOP [Concomitant]
     Active Substance: CANNABIS SATIVA SUBSP. INDICA TOP
     Dosage: UNK

REACTIONS (1)
  - Anaphylactic reaction [Recovered/Resolved]

NARRATIVE: CASE EVENT DATE: 20210818
